FAERS Safety Report 13697409 (Version 2)
Quarter: 2017Q3

REPORT INFORMATION
  Report Type: Spontaneous
  Country: US (occurrence: US)
  Receive Date: 20170628
  Receipt Date: 20170711
  Transmission Date: 20171127
  Serious: Yes (Other)
  Sender: FDA-Public Use
  Company Number: US-ASTRAZENECA-2017SE66035

PATIENT
  Sex: Male
  Weight: 89.4 kg

DRUGS (8)
  1. MOVANTIK [Suspect]
     Active Substance: NALOXEGOL OXALATE
     Indication: CONSTIPATION
     Dosage: 25.0MG AS REQUIRED
     Route: 048
  2. OXYCODONE [Concomitant]
     Active Substance: OXYCODONE
     Route: 065
  3. LEVOTHYROXINE. [Concomitant]
     Active Substance: LEVOTHYROXINE
     Indication: THYROID DISORDER
     Route: 048
  4. LINZESS [Concomitant]
     Active Substance: LINACLOTIDE
  5. DIAZEPAM. [Concomitant]
     Active Substance: DIAZEPAM
     Route: 065
  6. LOSARTAN. [Concomitant]
     Active Substance: LOSARTAN
     Indication: BLOOD PRESSURE ABNORMAL
     Route: 048
  7. LAMOTRIGINE. [Concomitant]
     Active Substance: LAMOTRIGINE
     Indication: ANXIETY
     Route: 048
  8. CLONAZEPAM. [Concomitant]
     Active Substance: CLONAZEPAM
     Route: 065

REACTIONS (14)
  - Renal disorder [Unknown]
  - Paraesthesia [Unknown]
  - Abdominal pain [Not Recovered/Not Resolved]
  - Drug ineffective [Not Recovered/Not Resolved]
  - Diarrhoea [Unknown]
  - Pain [Unknown]
  - Irritable bowel syndrome [Unknown]
  - Hyperhidrosis [Not Recovered/Not Resolved]
  - Off label use [Unknown]
  - Chills [Not Recovered/Not Resolved]
  - Hypoaesthesia [Unknown]
  - Peripheral arterial occlusive disease [Unknown]
  - Thyroid disorder [Unknown]
  - Dysuria [Unknown]
